FAERS Safety Report 5104523-1 (Version None)
Quarter: 2006Q3

REPORT INFORMATION
  Report Type: 
  Country: None (occurrence: None)
  Receive Date: 20060908
  Receipt Date: 20060908
  Transmission Date: 20061208
  Serious: Yes (Hospitalization)
  Sender: FDA-Public Use
  Company Number: None

PATIENT
  Age: 52 Year
  Sex: Male
  Weight: 63 kg

DRUGS (2)
  1. DOXEPIN HCL [Suspect]
     Indication: BIPOLAR II DISORDER
     Dosage: #150 FOR 30 DAYS [SEVERAL YEARS]  PO
     Route: 048
  2. DOXEPIN HCL [Suspect]
     Indication: DEPRESSION
     Dosage: #150 FOR 30 DAYS [SEVERAL YEARS]  PO
     Route: 048

REACTIONS (8)
  - ELECTROCARDIOGRAM QT CORRECTED INTERVAL PROLONGED [None]
  - ELECTROCARDIOGRAM QT PROLONGED [None]
  - INTENTIONAL OVERDOSE [None]
  - LOSS OF CONSCIOUSNESS [None]
  - RHABDOMYOLYSIS [None]
  - SOMNOLENCE [None]
  - SUICIDE ATTEMPT [None]
  - TRANSAMINASES INCREASED [None]
